FAERS Safety Report 11885385 (Version 1)
Quarter: 2016Q1

REPORT INFORMATION
  Report Type: Spontaneous
  Country: US (occurrence: US)
  Receive Date: 20160104
  Receipt Date: 20160104
  Transmission Date: 20160526
  Serious: Yes (Other)
  Sender: FDA-Public Use
  Company Number: US-SA-2015SA183751

PATIENT
  Sex: Female

DRUGS (2)
  1. ALLEGRA ALLERGY [Suspect]
     Active Substance: FEXOFENADINE HYDROCHLORIDE
     Indication: SINUS CONGESTION
     Dosage: DOSE: ONLY TOOK ONE DOSE
     Route: 048
     Dates: start: 20151109, end: 20151109
  2. LORATADINE. [Concomitant]
     Active Substance: LORATADINE
     Indication: SINUSITIS
     Route: 065

REACTIONS (7)
  - Disorientation [Unknown]
  - Dizziness [Unknown]
  - Loss of consciousness [Unknown]
  - Lip swelling [Unknown]
  - Feeling abnormal [Unknown]
  - Memory impairment [Unknown]
  - Asthenia [Unknown]

NARRATIVE: CASE EVENT DATE: 20151110
